FAERS Safety Report 9503087 (Version 2)
Quarter: 2013Q3

REPORT INFORMATION
  Report Type: Spontaneous
  Country: FR (occurrence: FR)
  Receive Date: 20130906
  Receipt Date: 20130906
  Transmission Date: 20140515
  Serious: Yes (Other)
  Sender: FDA-Public Use
  Company Number: FR-PFIZER INC-2013256042

PATIENT
  Age: 79 Year
  Sex: Female

DRUGS (5)
  1. AMIODARONE HCL [Suspect]
     Dosage: 200 MG, DAILY
     Route: 048
     Dates: start: 2009
  2. LEVOTHYROX [Concomitant]
     Dosage: UNK
     Dates: start: 2011
  3. COOLMETEC [Concomitant]
     Dosage: UNK
  4. KARDEGIC [Concomitant]
     Dosage: UNK
  5. LOXEN [Concomitant]
     Dosage: UNK

REACTIONS (4)
  - Myocardial infarction [Unknown]
  - Fatigue [Not Recovered/Not Resolved]
  - Weight decreased [Not Recovered/Not Resolved]
  - Sleep disorder [Not Recovered/Not Resolved]
